FAERS Safety Report 16710834 (Version 1)
Quarter: 2019Q3

REPORT INFORMATION
  Report Type: Spontaneous
  Country: US (occurrence: US)
  Receive Date: 20190816
  Receipt Date: 20190816
  Transmission Date: 20191004
  Serious: No
  Sender: FDA-Public Use
  Company Number: US-009507513-1908USA006494

PATIENT
  Age: 46 Year
  Sex: Female

DRUGS (3)
  1. DABRAFENIB [Concomitant]
     Active Substance: DABRAFENIB
     Indication: ANAPLASTIC THYROID CANCER
  2. KEYTRUDA [Suspect]
     Active Substance: PEMBROLIZUMAB
     Indication: ANAPLASTIC THYROID CANCER
     Dosage: 200 MILLIGRAM, EVERY 3 WEEKS
  3. TRAMETINIB [Concomitant]
     Active Substance: TRAMETINIB
     Indication: ANAPLASTIC THYROID CANCER
     Dosage: UNK

REACTIONS (2)
  - Drug effective for unapproved indication [Unknown]
  - Product use in unapproved indication [Unknown]
